FAERS Safety Report 12499414 (Version 2)
Quarter: 2016Q3

REPORT INFORMATION
  Report Type: Spontaneous
  Country: IT (occurrence: IT)
  Receive Date: 20160627
  Receipt Date: 20160720
  Transmission Date: 20161109
  Serious: Yes (Other)
  Sender: FDA-Public Use
  Company Number: IT-ABBVIE-16P-083-1661142-00

PATIENT
  Sex: Male

DRUGS (1)
  1. ENANTONE LP [Suspect]
     Active Substance: LEUPROLIDE ACETATE
     Indication: PROSTATECTOMY
     Dosage: UNK
     Route: 065
     Dates: start: 201510

REACTIONS (3)
  - Gait disturbance [Not Recovered/Not Resolved]
  - Bone pain [Not Recovered/Not Resolved]
  - Muscular weakness [Not Recovered/Not Resolved]
